FAERS Safety Report 7725379-4 (Version None)
Quarter: 2011Q3

REPORT INFORMATION
  Report Type: 
  Country: None (occurrence: None)
  Receive Date: 20110829
  Receipt Date: 20110817
  Transmission Date: 20111222
  Serious: Yes (Death)
  Sender: FDA-Public Use
  Company Number: PET2-NO-11085-0002

PATIENT

DRUGS (1)
  1. FLUDEOXYGLUCOSE [Suspect]
     Indication: PRODUCT USED FOR UNKNOWN INDICATION
     Dosage: SINGLE DOSE
     Dates: start: 20110714, end: 20110714

REACTIONS (1)
  - DEATH [None]
